FAERS Safety Report 23670081 (Version 1)
Quarter: 2024Q1

REPORT INFORMATION
  Report Type: Spontaneous
  Country: HR (occurrence: HR)
  Receive Date: 20240325
  Receipt Date: 20240325
  Transmission Date: 20240410
  Serious: Yes (Hospitalization, Other)
  Sender: FDA-Public Use
  Company Number: HR-009507513-2403HRV007501

PATIENT
  Age: 62 Year
  Sex: Female

DRUGS (1)
  1. KEYTRUDA [Suspect]
     Active Substance: PEMBROLIZUMAB
     Indication: Lung neoplasm malignant
     Dosage: UNK
     Dates: start: 20220207, end: 20231212

REACTIONS (12)
  - Cholecystitis acute [Unknown]
  - Hypothyroidism [Unknown]
  - Colitis [Unknown]
  - Malignant neoplasm progression [Unknown]
  - Polyarthritis [Recovered/Resolved]
  - Pancreatitis acute [Unknown]
  - Sinusitis [Unknown]
  - Pyrexia [Unknown]
  - Gastroenteritis [Unknown]
  - Peripheral vascular disorder [Unknown]
  - Inappropriate schedule of product administration [Unknown]
  - Inappropriate schedule of product administration [Unknown]

NARRATIVE: CASE EVENT DATE: 20231010
